FAERS Safety Report 5419561-9 (Version None)
Quarter: 2007Q3

REPORT INFORMATION
  Report Type: 
  Country: None (occurrence: None)
  Receive Date: 20070815
  Receipt Date: 20070815
  Transmission Date: 20080115
  Serious: Yes (Hospitalization)
  Sender: FDA-Public Use
  Company Number: None

PATIENT
  Age: 53 Year
  Sex: Female
  Weight: 60.5 kg

DRUGS (5)
  1. COUMADIN [Suspect]
     Indication: COAGULOPATHY
     Dosage: 5 MG  DAILY  PO
     Route: 048
     Dates: start: 20070629, end: 20070705
  2. VORICONAZOLE [Concomitant]
  3. DUONEBS [Concomitant]
  4. PREDNISONE TAB [Concomitant]
  5. OXYGEN [Concomitant]

REACTIONS (5)
  - MYCETOMA MYCOTIC [None]
  - RASH [None]
  - SARCOIDOSIS [None]
  - SKIN NECROSIS [None]
  - VASCULITIS [None]
